FAERS Safety Report 23751484 (Version 1)
Quarter: 2024Q2

REPORT INFORMATION
  Report Type: Report from Study
  Country: US (occurrence: US)
  Receive Date: 20240417
  Receipt Date: 20240417
  Transmission Date: 20240715
  Serious: Yes (Hospitalization)
  Sender: FDA-Public Use
  Company Number: US-AVEO PHARMACEUTICALS, INC.-2024-AVEO-US000312

PATIENT

DRUGS (13)
  1. FOTIVDA [Suspect]
     Active Substance: TIVOZANIB HYDROCHLORIDE
     Indication: Renal cell carcinoma
     Dosage: 1.34 MG, DAILY FOR 21 DAYS WITH 7 DAYS OFF (28-DAY CYCLE)
     Route: 048
     Dates: start: 20240220, end: 20240401
  2. ATORVASTATIN [Concomitant]
     Active Substance: ATORVASTATIN
  3. BENZONATATE [Concomitant]
     Active Substance: BENZONATATE
  4. CHLORTHALIDONE [Concomitant]
     Active Substance: CHLORTHALIDONE
  5. CLINDAMYCIN [Concomitant]
     Active Substance: CLINDAMYCIN
  6. ELIQUIS [Concomitant]
     Active Substance: APIXABAN
  7. INSULIN LISPRO [Concomitant]
     Active Substance: INSULIN LISPRO
  8. LEVOTHYROXINE SODIUM [Concomitant]
     Active Substance: LEVOTHYROXINE SODIUM
  9. LIDOCAINE VISCOUS [Concomitant]
     Active Substance: LIDOCAINE HYDROCHLORIDE
  10. OZEMPIC [Concomitant]
     Active Substance: SEMAGLUTIDE
  11. TOUJEO [Concomitant]
     Active Substance: INSULIN GLARGINE
  12. VITAMIN D3 [Concomitant]
     Active Substance: CHOLECALCIFEROL
  13. XGEVA [Concomitant]
     Active Substance: DENOSUMAB

REACTIONS (1)
  - Platelet count decreased [Unknown]

NARRATIVE: CASE EVENT DATE: 20240401
